FAERS Safety Report 6432286-6 (Version None)
Quarter: 2009Q4

REPORT INFORMATION
  Report Type: 
  Country: None (occurrence: None)
  Receive Date: 20091105
  Receipt Date: 20091027
  Transmission Date: 20100525
  Serious: Yes (Other)
  Sender: FDA-Public Use
  Company Number: 232400J09USA

PATIENT
  Age: 40 Year
  Sex: Female

DRUGS (2)
  1. REBIF [Suspect]
     Dates: start: 20031027, end: 20090501
  2. CELLCEPT [Suspect]
     Dates: end: 20090501

REACTIONS (1)
  - WOUND INFECTION STAPHYLOCOCCAL [None]
